FAERS Safety Report 4605716-X (Version None)
Quarter: 2005Q2

REPORT INFORMATION
  Report Type: 
  Country: None (occurrence: None)
  Receive Date: 20050214
  Receipt Date: 20041228
  Transmission Date: 20051028
  Serious: No
  Sender: FDA-Public Use
  Company Number: USA041287109

PATIENT
  Sex: Male

DRUGS (4)
  1. CIALIS [Suspect]
     Dosage: 10 MG
  2. PROCAINAMIDE [Concomitant]
  3. ZOCOR (SIMVASTATIN RATIOPHARM) [Concomitant]
  4. TERAZOSIN [Concomitant]

REACTIONS (3)
  - HEADACHE [None]
  - HEART RATE INCREASED [None]
  - NASAL CONGESTION [None]
